FAERS Safety Report 4512359-5 (Version None)
Quarter: 2004Q4

REPORT INFORMATION
  Report Type: 
  Country: None (occurrence: None)
  Receive Date: 20041123
  Receipt Date: 20041116
  Transmission Date: 20050328
  Serious: Yes (Life-Threatening)
  Sender: FDA-Public Use
  Company Number: 2004AP05871

PATIENT
  Sex: Female

DRUGS (1)
  1. IRESSA [Suspect]
     Indication: CARCINOMA

REACTIONS (2)
  - HEPATIC FUNCTION ABNORMAL [None]
  - THROMBOCYTOPENIA [None]
